FAERS Safety Report 15879338 (Version 1)
Quarter: 2019Q1

REPORT INFORMATION
  Report Type: Spontaneous
  Country: US (occurrence: US)
  Receive Date: 20190126
  Receipt Date: 20190126
  Transmission Date: 20190417
  Serious: Yes (Life-Threatening, Hospitalization, Other)
  Sender: FDA-Public Use
  Company Number: None

PATIENT
  Age: 14 Year
  Sex: Male
  Weight: 41 kg

DRUGS (1)
  1. TRAMETINIB [Suspect]
     Active Substance: TRAMETINIB
     Indication: VENOLYMPHATIC MALFORMATION
     Route: 048
     Dates: start: 20170404, end: 20190121

REACTIONS (3)
  - Abdominal adhesions [None]
  - Intestinal obstruction [None]
  - Volvulus [None]

NARRATIVE: CASE EVENT DATE: 20190121
